FAERS Safety Report 6812511-X (Version None)
Quarter: 2010Q3

REPORT INFORMATION
  Report Type: 
  Country: None (occurrence: None)
  Receive Date: 20100701
  Receipt Date: 20090205
  Transmission Date: 20110219
  Serious: Yes (Hospitalization)
  Sender: FDA-Public Use
  Company Number: US-EISAI INC.-E3810-02542-CLI-US

PATIENT
  Sex: Male
  Weight: 112 kg

DRUGS (1)
  1. RABEPRAZOLE ER [Suspect]
     Dates: start: 20090108

REACTIONS (1)
  - PNEUMONIA [None]
